FAERS Safety Report 4898669-0 (Version None)
Quarter: 2006Q1

REPORT INFORMATION
  Report Type: 
  Country: None (occurrence: None)
  Receive Date: 20060202
  Receipt Date: 20011217
  Transmission Date: 20060701
  Serious: Yes (Death)
  Sender: FDA-Public Use
  Company Number: US-BOEHRINGER INGELHEIM PHARMACEUTICALS, INC.-2001-BP-05159BP

PATIENT

DRUGS (3)
  1. VIRAMUNE [Suspect]
     Indication: HIV INFECTION
     Route: 048
     Dates: start: 19980211, end: 19980814
  2. NELFINAVIR [Suspect]
     Indication: HIV INFECTION
  3. VIDEX [Suspect]
     Indication: HIV INFECTION

REACTIONS (1)
  - HEPATORENAL FAILURE [None]
